FAERS Safety Report 14280066 (Version 1)
Quarter: 2017Q4

REPORT INFORMATION
  Report Type: Spontaneous
  Country: US (occurrence: US)
  Receive Date: 20171212
  Receipt Date: 20171212
  Transmission Date: 20180321
  Serious: No
  Sender: FDA-Public Use
  Company Number: US-ACTELION-A-US2017-164133

PATIENT
  Age: 6 Month
  Sex: Female

DRUGS (6)
  1. SILDENAFIL. [Concomitant]
     Active Substance: SILDENAFIL
  2. ELECTROLYTES NOS [Concomitant]
     Active Substance: ELECTROLYTES NOS
  3. LASIX [Concomitant]
     Active Substance: FUROSEMIDE
  4. DIURIL [Concomitant]
     Active Substance: CHLOROTHIAZIDE
  5. MIDAZOLAM [Concomitant]
     Active Substance: MIDAZOLAM HYDROCHLORIDE
  6. TRACLEER [Suspect]
     Active Substance: BOSENTAN
     Indication: PULMONARY ARTERIAL HYPERTENSION
     Dosage: 6 MG, BID
     Route: 048
     Dates: start: 20171011

REACTIONS (2)
  - No adverse event [Unknown]
  - Product use issue [Unknown]
